FAERS Safety Report 25828545 (Version 1)
Quarter: 2025Q3

REPORT INFORMATION
  Report Type: Spontaneous
  Country: US (occurrence: US)
  Receive Date: 20250922
  Receipt Date: 20250922
  Transmission Date: 20251021
  Serious: No
  Sender: MICRO LABS
  Company Number: US-862174955-ML2025-04637

PATIENT
  Age: 81 Year
  Sex: Female
  Weight: 56 kg

DRUGS (4)
  1. TAFLUPROST [Suspect]
     Active Substance: TAFLUPROST
     Indication: Glaucoma
     Dosage: DOSE: ONE VIAL PER DAY?FREQUENCY: IN THE EVENING
     Route: 047
     Dates: start: 2025
  2. TAFLUPROST [Suspect]
     Active Substance: TAFLUPROST
     Indication: Macular degeneration
  3. AZOPT [Concomitant]
     Active Substance: BRINZOLAMIDE
     Indication: Product used for unknown indication
  4. BRIMONIDINE [Concomitant]
     Active Substance: BRIMONIDINE TARTRATE
     Indication: Product used for unknown indication

REACTIONS (3)
  - Product dose omission issue [Unknown]
  - Product packaging quantity issue [Unknown]
  - No adverse event [Unknown]

NARRATIVE: CASE EVENT DATE: 20250101
